FAERS Safety Report 8818088 (Version 2)
Quarter: 2013Q1

REPORT INFORMATION
  Report Type: Report from Study
  Country: SE (occurrence: SE)
  Receive Date: 20121001
  Receipt Date: 20130305
  Transmission Date: 20140127
  Serious: Yes (Hospitalization, Other)
  Sender: FDA-Public Use
  Company Number: SE-ABBOTT-12P-150-0963176-00

PATIENT
  Age: 48 Year
  Sex: Female

DRUGS (1)
  1. HUMIRA 40 MG/ 0.8 ML PRE-FILLED SYRINGE [Suspect]
     Indication: RHEUMATOID ARTHRITIS
     Dosage: 80 MG MONTHLY
     Route: 058
     Dates: start: 20100512, end: 201206

REACTIONS (7)
  - Chills [Recovering/Resolving]
  - Bacterial infection [Recovered/Resolved]
  - Pyrexia [Recovered/Resolved]
  - Diarrhoea [Recovered/Resolved]
  - Painful respiration [Recovering/Resolving]
  - Cough [Recovering/Resolving]
  - Mycobacterial infection [Recovering/Resolving]
